FAERS Safety Report 7658385-9 (Version None)
Quarter: 2011Q3

REPORT INFORMATION
  Report Type: 
  Country: None (occurrence: None)
  Receive Date: 20110802
  Receipt Date: 20110719
  Transmission Date: 20111222
  Serious: No
  Sender: FDA-Public Use
  Company Number: LTI2011A00211

PATIENT
  Age: 66 Year
  Sex: Male

DRUGS (1)
  1. ACTOS [Suspect]
     Indication: TYPE 2 DIABETES MELLITUS
     Dosage: (15 MG,D),ORAL
     Route: 048
     Dates: start: 20080926, end: 20090515

REACTIONS (2)
  - BLADDER CANCER [None]
  - DYSURIA [None]
